FAERS Safety Report 9495919 (Version 2)
Quarter: 2013Q3

REPORT INFORMATION
  Report Type: Report from Study
  Country: US (occurrence: US)
  Receive Date: 20130903
  Receipt Date: 20130930
  Transmission Date: 20140515
  Serious: Yes (Hospitalization)
  Sender: FDA-Public Use
  Company Number: US-009507513-1308USA013395

PATIENT
  Age: 76 Year
  Sex: Male
  Weight: 85.35 kg

DRUGS (2)
  1. MK-3475 [Suspect]
     Indication: NON-SMALL CELL LUNG CANCER
     Dosage: 10 MG/KG, Q3W
     Route: 042
     Dates: start: 20130731
  2. SODIUM CHLORIDE [Suspect]
     Indication: DEHYDRATION
     Dosage: UNK, ONCE
     Route: 042
     Dates: start: 20130821, end: 20130821

REACTIONS (2)
  - Pulmonary oedema [Not Recovered/Not Resolved]
  - Cardiac failure congestive [Not Recovered/Not Resolved]
